FAERS Safety Report 14628633 (Version 2)
Quarter: 2018Q1

REPORT INFORMATION
  Report Type: Spontaneous
  Country: ES (occurrence: ES)
  Receive Date: 20180313
  Receipt Date: 20180326
  Transmission Date: 20180509
  Serious: Yes (Other)
  Sender: FDA-Public Use
  Company Number: ES-ZYDUS-019236

PATIENT
  Age: 71 Year
  Sex: Female

DRUGS (2)
  1. TRAMADOL. [Suspect]
     Active Substance: TRAMADOL
     Indication: ARTHRALGIA
     Dosage: RETARD (PROLONGED-RELEASE)
  2. TELMISARTAN W/ HYDROCHLOROTHIAZIDE [Concomitant]
     Indication: HYPERTENSION
     Route: 065

REACTIONS (6)
  - Tubulointerstitial nephritis [Recovering/Resolving]
  - Acute kidney injury [Recovering/Resolving]
  - Renal impairment [Recovering/Resolving]
  - Nausea [Recovering/Resolving]
  - Proteinuria [Recovering/Resolving]
  - Fluid intake restriction [Recovering/Resolving]
